FAERS Safety Report 6956055-3 (Version None)
Quarter: 2010Q3

REPORT INFORMATION
  Report Type: 
  Country: None (occurrence: None)
  Receive Date: 20100830
  Receipt Date: 20100824
  Transmission Date: 20110219
  Serious: Yes (Other)
  Sender: FDA-Public Use
  Company Number: ES-SHIRE-SPV1-2010-01417

PATIENT

DRUGS (2)
  1. VELAGLUCERASE ALFA [Suspect]
     Indication: GAUCHER'S DISEASE
     Dosage: UNK, UNKNOWN
     Route: 041
  2. IMIGLUCERASE [Concomitant]
     Indication: GAUCHER'S DISEASE

REACTIONS (3)
  - DIZZINESS [None]
  - PARAESTHESIA [None]
  - VISION BLURRED [None]
